FAERS Safety Report 7778532-8 (Version None)
Quarter: 2011Q3

REPORT INFORMATION
  Report Type: 
  Country: None (occurrence: None)
  Receive Date: 20110926
  Receipt Date: 20110913
  Transmission Date: 20111222
  Serious: Yes (Other)
  Sender: FDA-Public Use
  Company Number: US-BAYER-2011-085496

PATIENT
  Age: 29 Year
  Sex: Female

DRUGS (1)
  1. MIRENA [Suspect]
     Indication: CONTRACEPTION
     Dosage: UNK
     Route: 015
     Dates: start: 20090101

REACTIONS (8)
  - DEVICE DISLOCATION [None]
  - PELVIC INFECTION [None]
  - GENITAL HAEMORRHAGE [None]
  - VAGINAL HAEMORRHAGE [None]
  - UTERINE CONTRACTIONS ABNORMAL [None]
  - AMENORRHOEA [None]
  - MUSCLE SPASMS [None]
  - UTERINE PAIN [None]
